FAERS Safety Report 15318451 (Version 1)
Quarter: 2018Q3

REPORT INFORMATION
  Report Type: Spontaneous
  Country: IN (occurrence: IN)
  Receive Date: 20180817
  Receipt Date: 20180817
  Transmission Date: 20181010
  Serious: Yes (Other)
  Sender: FDA-Public Use
  Company Number: None

PATIENT
  Age: 26 Year
  Sex: Male
  Weight: 88 kg

DRUGS (3)
  1. OMEGA 3 FISH OIL ( NATURE^S BOUNTY ) [Concomitant]
  2. PREDNISOLONE. [Concomitant]
     Active Substance: PREDNISOLONE
  3. RITUXIMAB. [Suspect]
     Active Substance: RITUXIMAB
     Indication: PEMPHIGUS
     Dosage: ?          QUANTITY:1 DF DOSAGE FORM;?
     Route: 042
     Dates: start: 20180307, end: 20180307

REACTIONS (1)
  - Oxygen saturation decreased [None]

NARRATIVE: CASE EVENT DATE: 20180307
